FAERS Safety Report 5521769-9 (Version None)
Quarter: 2007Q4

REPORT INFORMATION
  Report Type: 
  Country: None (occurrence: None)
  Receive Date: 20071120
  Receipt Date: 20071108
  Transmission Date: 20080405
  Serious: Yes (Hospitalization)
  Sender: FDA-Public Use
  Company Number: GB-ROCHE-524561

PATIENT
  Age: 58 Year
  Sex: Female
  Weight: 139.7 kg

DRUGS (10)
  1. ORLISTAT [Suspect]
     Indication: OBESITY
     Route: 048
     Dates: start: 20050101
  2. ORLISTAT [Suspect]
     Route: 048
     Dates: start: 20070516, end: 20070825
  3. CEPHALEXIN [Concomitant]
     Route: 048
     Dates: start: 20070926
  4. METFORMIN HYDROCHLORIDE [Concomitant]
     Route: 048
  5. ATORVASTATIN CALCIUM [Concomitant]
     Dosage: DOSAGE REPORTED: 10MG NOCTE
     Route: 048
  6. LANSOPRAZOLE [Concomitant]
     Route: 048
  7. CO CODAMOL [Concomitant]
     Indication: ARTHRITIS
     Route: 048
  8. ALBUTEROL [Concomitant]
     Indication: ASTHMA
     Route: 055
  9. GTN SPRAY [Concomitant]
     Indication: ANGINA PECTORIS
     Route: 060
     Dates: start: 20070926
  10. ASPIRIN [Concomitant]
     Route: 048

REACTIONS (4)
  - ANGINA PECTORIS [None]
  - LOWER RESPIRATORY TRACT INFECTION [None]
  - PULMONARY OEDEMA [None]
  - TYPE 2 DIABETES MELLITUS [None]
